FAERS Safety Report 9908972 (Version 1)
Quarter: 2014Q1

REPORT INFORMATION
  Report Type: Spontaneous
  Country: US (occurrence: None)
  Receive Date: 20140211
  Receipt Date: 20140211
  Transmission Date: 20141002
  Serious: Yes (Death)
  Sender: FDA-Public Use
  Company Number: 2014020004

PATIENT
  Age: 53 Year
  Sex: Male

DRUGS (5)
  1. ZOLPIDEM (ZOLPIDEM) [Suspect]
  2. FENTANYL (FENTANYL) [Suspect]
  3. HYDROMORPHONE (HYDROMORPHONE) [Suspect]
  4. ACETAMINOPHEN W/OXYCODONE [Suspect]
  5. DIAZEPAM (DIAZEPAM) [Suspect]

REACTIONS (4)
  - Exposure via ingestion [None]
  - Drug abuse [None]
  - Cardiac arrest [None]
  - Respiratory arrest [None]
